FAERS Safety Report 13639210 (Version 1)
Quarter: 2017Q2

REPORT INFORMATION
  Report Type: Spontaneous
  Country: US (occurrence: US)
  Receive Date: 20170609
  Receipt Date: 20170609
  Transmission Date: 20170830
  Serious: No
  Sender: FDA-Public Use
  Company Number: US-ROCHE-1423194

PATIENT
  Sex: Male

DRUGS (2)
  1. CLONAZEPAM. [Suspect]
     Active Substance: CLONAZEPAM
     Indication: PRODUCT USED FOR UNKNOWN INDICATION
     Route: 065
  2. KLONOPIN [Suspect]
     Active Substance: CLONAZEPAM
     Indication: DEPRESSION
     Dosage: 1/2
     Route: 065

REACTIONS (7)
  - Depressed mood [Unknown]
  - Depression [Unknown]
  - Feeling of despair [Not Recovered/Not Resolved]
  - Crying [Unknown]
  - Drug intolerance [Unknown]
  - Emotional distress [Unknown]
  - Anxiety [Unknown]
